FAERS Safety Report 13439897 (Version 1)
Quarter: 2017Q2

REPORT INFORMATION
  Report Type: Other
  Country: AU (occurrence: AU)
  Receive Date: 20170413
  Receipt Date: 20170413
  Transmission Date: 20170830
  Serious: Yes (Other)
  Sender: FDA-Public Use
  Company Number: AU-APOTEX-2017AP010418

PATIENT
  Age: 61 Year
  Sex: Male

DRUGS (5)
  1. OLMESARTANA + HIDROCLOROTIAZIDA [Suspect]
     Active Substance: HYDROCHLOROTHIAZIDE\OLMESARTAN MEDOXOMIL
     Indication: PRODUCT USED FOR UNKNOWN INDICATION
     Route: 065
  2. METOPROLOL. [Suspect]
     Active Substance: METOPROLOL
     Indication: PRODUCT USED FOR UNKNOWN INDICATION
     Route: 065
  3. APOHEALTH CARDIO ASPIRIN [Suspect]
     Active Substance: ASPIRIN
     Indication: PRODUCT USED FOR UNKNOWN INDICATION
     Route: 065
  4. APO-ATORVASTATIN [Suspect]
     Active Substance: ATORVASTATIN
     Indication: PRODUCT USED FOR UNKNOWN INDICATION
     Dosage: 80 MG, QD
     Route: 065
  5. DICLOFENAC SODIUM. [Suspect]
     Active Substance: DICLOFENAC SODIUM
     Indication: PRODUCT USED FOR UNKNOWN INDICATION
     Route: 065

REACTIONS (8)
  - Muscle spasms [Unknown]
  - Blood creatine phosphokinase abnormal [Unknown]
  - Syncope [Unknown]
  - Urine odour abnormal [Recovered/Resolved]
  - Pain in extremity [Recovered/Resolved]
  - Myalgia [Unknown]
  - Chromaturia [Unknown]
  - Dizziness [Unknown]

NARRATIVE: CASE EVENT DATE: 20160926
